FAERS Safety Report 8153000-2 (Version None)
Quarter: 2012Q1

REPORT INFORMATION
  Report Type: 
  Country: None (occurrence: None)
  Receive Date: 20120221
  Receipt Date: 20120217
  Transmission Date: 20120608
  Serious: No
  Sender: FDA-Public Use
  Company Number: US-PFIZER INC-2012043586

PATIENT
  Sex: Female
  Weight: 54.422 kg

DRUGS (5)
  1. CHANTIX [Suspect]
     Indication: SMOKING CESSATION THERAPY
     Dosage: 1 MG, 2X/DAY
     Route: 048
     Dates: start: 20120122
  2. TEMPRA [Concomitant]
     Indication: MUSCLE SPASMS
     Dosage: UNK
  3. ASPIRIN [Concomitant]
     Indication: MUSCLE SPASMS
     Dosage: UNK
  4. LUNESTA [Concomitant]
     Dosage: UNK
  5. HYDROCODONE [Concomitant]
     Indication: PAIN
     Dosage: UNK

REACTIONS (5)
  - SKIN DISORDER [None]
  - ABNORMAL DREAMS [None]
  - DEPRESSED MOOD [None]
  - DISTURBANCE IN ATTENTION [None]
  - NAUSEA [None]
